FAERS Safety Report 9929326 (Version 1)
Quarter: 2014Q1

REPORT INFORMATION
  Report Type: Spontaneous
  Country: GB (occurrence: GB)
  Receive Date: 20140227
  Receipt Date: 20140227
  Transmission Date: 20141002
  Serious: Yes (Other)
  Sender: FDA-Public Use
  Company Number: GB-WATSON-2014-03151

PATIENT
  Age: 79 Year
  Sex: Female
  Weight: 51 kg

DRUGS (3)
  1. ALENDRONIC ACID (UNKNOWN) [Suspect]
     Indication: FEMUR FRACTURE
     Dosage: 70 MG, 1/WEEK - HAVE BEEN TAKING IT FOR 6 YEARS 3 MONTHS.
     Route: 048
     Dates: start: 20070304, end: 20130628
  2. THYROXINE [Concomitant]
     Indication: PRODUCT USED FOR UNKNOWN INDICATION
     Dosage: 125 ?G, DAILY
     Route: 065
  3. TEMAZEPAM [Concomitant]
     Indication: PRODUCT USED FOR UNKNOWN INDICATION
     Dosage: 10 MG, QHS
     Route: 065

REACTIONS (5)
  - Bone pain [Recovering/Resolving]
  - Malaise [Recovering/Resolving]
  - Myalgia [Recovering/Resolving]
  - Flatulence [Recovering/Resolving]
  - Hypoaesthesia [Recovering/Resolving]
